FAERS Safety Report 20621072 (Version 3)
Quarter: 2022Q2

REPORT INFORMATION
  Report Type: Spontaneous
  Country: CA (occurrence: CA)
  Receive Date: 20220322
  Receipt Date: 20220624
  Transmission Date: 20220721
  Serious: Yes (Other)
  Sender: FDA-Public Use
  Company Number: CA-MLMSERVICE-20180326-1124841-1

PATIENT
  Age: 55 Year
  Sex: Male

DRUGS (3)
  1. HYDROCHLOROTHIAZIDE [Suspect]
     Active Substance: HYDROCHLOROTHIAZIDE
     Indication: Hypertension
     Dosage: 1 EVERY 1 DAYS
     Route: 065
  2. CANDESARTAN [Suspect]
     Active Substance: CANDESARTAN
     Indication: Hypertension
     Dosage: 1 EVERY 1 DAYS
     Route: 048
  3. PONATINIB [Concomitant]
     Active Substance: PONATINIB
     Indication: Chronic myeloid leukaemia
     Route: 065
     Dates: start: 2011

REACTIONS (5)
  - Renovascular hypertension [Unknown]
  - Renal artery stent placement [Recovered/Resolved]
  - Renal artery stenosis [Recovered/Resolved]
  - Renal artery angioplasty [Recovered/Resolved]
  - Blood creatinine increased [Recovered/Resolved]
